FAERS Safety Report 4318082-4 (Version None)
Quarter: 2004Q1

REPORT INFORMATION
  Report Type: 
  Country: None (occurrence: None)
  Receive Date: 20040317
  Receipt Date: 20040116
  Transmission Date: 20041129
  Serious: Yes (Life-Threatening, Other)
  Sender: FDA-Public Use
  Company Number: GB-BRISTOL-MYERS SQUIBB COMPANY-12484002

PATIENT
  Age: 72 Year
  Sex: Female

DRUGS (8)
  1. CYCLOPHOSPHAMIDE [Suspect]
     Route: 042
  2. ALFACALCIDOL [Concomitant]
  3. ATORVASTATIN [Concomitant]
  4. CO-TRIMOXAZOLE [Concomitant]
  5. PREDNISOLONE [Concomitant]
  6. ZOTON [Concomitant]
  7. CALCIUM CARBONATE [Concomitant]
  8. IRBESARTAN [Concomitant]

REACTIONS (3)
  - CONFUSIONAL STATE [None]
  - NON-HODGKIN'S LYMPHOMA [None]
  - TREATMENT RELATED SECONDARY MALIGNANCY [None]
